FAERS Safety Report 9739226 (Version 1)
Quarter: 2013Q4

REPORT INFORMATION
  Report Type: Report from Study
  Country: CA (occurrence: CA)
  Receive Date: 20131209
  Receipt Date: 20131209
  Transmission Date: 20140711
  Serious: Yes (Other)
  Sender: FDA-Public Use
  Company Number: CA-US-EMD SERONO, INC.-7255931

PATIENT
  Sex: Female

DRUGS (5)
  1. GONAL-F [Suspect]
     Indication: INFERTILITY
     Route: 058
     Dates: start: 20131128
  2. GONAL-F [Suspect]
     Route: 058
     Dates: start: 20131128, end: 20131129
  3. GONAL-F [Suspect]
     Route: 058
     Dates: start: 20131130
  4. GONAL-F [Suspect]
     Route: 058
     Dates: start: 20131201
  5. GONAL-F [Suspect]
     Route: 058
     Dates: start: 20131202

REACTIONS (5)
  - Loss of consciousness [Unknown]
  - Paraesthesia [Unknown]
  - Fear of injection [Unknown]
  - Vomiting [Unknown]
  - Incorrect dose administered [Unknown]
